FAERS Safety Report 7900646-X (Version None)
Quarter: 2011Q4

REPORT INFORMATION
  Report Type: 
  Country: None (occurrence: None)
  Receive Date: 20111108
  Receipt Date: 20111025
  Transmission Date: 20120403
  Serious: No
  Sender: FDA-Public Use
  Company Number: US-PFIZER INC-2011262934

PATIENT
  Sex: Male

DRUGS (1)
  1. ZALEPLON [Suspect]
     Indication: INSOMNIA
     Dosage: 10 MG, UNK

REACTIONS (2)
  - INSOMNIA [None]
  - DRUG INEFFECTIVE [None]
